FAERS Safety Report 7372509-2 (Version None)
Quarter: 2011Q1

REPORT INFORMATION
  Report Type: 
  Country: None (occurrence: None)
  Receive Date: 20110315
  Receipt Date: 20110310
  Transmission Date: 20110831
  Serious: Yes (Hospitalization)
  Sender: FDA-Public Use
  Company Number: 1000019163

PATIENT
  Age: 19 Year
  Sex: Female

DRUGS (8)
  1. CITALOPRAM HYDROBROMIDE [Suspect]
     Indication: MAJOR DEPRESSION
     Dosage: ORAL
     Route: 048
  2. DIAZEPAM [Concomitant]
  3. VALPROATE (VALPROATE SEMISODIUM) [Suspect]
     Indication: CONVULSION
     Dosage: ORAL
     Route: 048
  4. LAMOTRIGINE [Concomitant]
  5. LORAZEPAM (LORAZEPAM) (LORAZPEM) [Concomitant]
  6. CLONAZEPAM (CLONAZEPAM) (CLONAZEPAN) [Concomitant]
  7. LEVETIRACETAM (LEVETIRACETAM) (LEVETIRACETAM) [Concomitant]
  8. ZONISAMIDE (ZONISAMIDE) (ZONISAMIDE) [Concomitant]

REACTIONS (8)
  - THROMBOCYTOPENIA [None]
  - THERAPEUTIC RESPONSE DECREASED [None]
  - OVERDOSE [None]
  - DEPRESSION [None]
  - MYOCLONUS [None]
  - LEUKOPENIA [None]
  - MANIA [None]
  - ANXIETY [None]
